FAERS Safety Report 5406563-1 (Version None)
Quarter: 2007Q3

REPORT INFORMATION
  Report Type: 
  Country: None (occurrence: None)
  Receive Date: 20070806
  Receipt Date: 20070730
  Transmission Date: 20080115
  Serious: Yes (Other)
  Sender: FDA-Public Use
  Company Number: FR-PFIZER INC-2007054991

PATIENT
  Sex: Female
  Weight: 47 kg

DRUGS (10)
  1. LYRICA [Suspect]
     Indication: GENERALISED ANXIETY DISORDER
     Route: 048
  2. LYRICA [Suspect]
     Indication: FACIAL PALSY
  3. KARDEGIC [Concomitant]
  4. CALCIUM W/COLECALCIFEROL [Concomitant]
  5. POVIDONE [Concomitant]
  6. ZOPICLONE [Concomitant]
     Indication: INSOMNIA
     Route: 048
  7. PROTHIADEN [Concomitant]
     Indication: INSOMNIA
     Route: 048
  8. NARAMIG [Concomitant]
     Indication: MIGRAINE
     Dosage: FREQ:OCCASIONAL INTAKE
     Route: 048
  9. BROMAZEPAM [Concomitant]
     Indication: ANXIETY
     Route: 048
  10. VASTAREL [Concomitant]
     Indication: CATARACT
     Route: 048

REACTIONS (2)
  - GLAUCOMA [None]
  - OCULAR HYPERTENSION [None]
